FAERS Safety Report 5675477-4 (Version None)
Quarter: 2008Q2

REPORT INFORMATION
  Report Type: 
  Country: None (occurrence: None)
  Receive Date: 20080313
  Receipt Date: 20060912
  Transmission Date: 20081010
  Serious: Yes (Other)
  Sender: FDA-Public Use
  Company Number: AEDO20061209MED1

PATIENT
  Age: 67 Year
  Sex: Female

DRUGS (3)
  1. DERMOTIC EAR DROPS HILL DERMACEUTICALS, INC [Suspect]
     Indication: PRURITUS
     Dosage: 2 DROPS TWICE DAILY
  2. SYNTHROID [Concomitant]
  3. LIPITOR [Concomitant]

REACTIONS (1)
  - CHORIORETINOPATHY [None]
